FAERS Safety Report 5952468-7 (Version None)
Quarter: 2008Q4

REPORT INFORMATION
  Report Type: 
  Country: None (occurrence: None)
  Receive Date: 20081113
  Receipt Date: 20081106
  Transmission Date: 20090506
  Serious: Yes (Other)
  Sender: FDA-Public Use
  Company Number: BR-PFIZER INC-2008079440

PATIENT
  Sex: Female

DRUGS (3)
  1. CHAMPIX [Suspect]
     Indication: TOBACCO USER
     Route: 048
     Dates: start: 20080701, end: 20080904
  2. CHAMPIX [Suspect]
     Indication: SMOKING CESSATION THERAPY
  3. SIMVASTATIN [Concomitant]
     Dates: start: 20080401

REACTIONS (4)
  - ABNORMAL BEHAVIOUR [None]
  - DELIRIUM [None]
  - PSYCHOTIC DISORDER [None]
  - SCHIZOPHRENIA [None]
